FAERS Safety Report 9815744 (Version 1)
Quarter: 2014Q1

REPORT INFORMATION
  Report Type: Spontaneous
  Country: US (occurrence: None)
  Receive Date: 20140110
  Receipt Date: 20140110
  Transmission Date: 20141002
  Serious: Yes (Other)
  Sender: FDA-Public Use
  Company Number: SYM-2014-14621

PATIENT
  Age: 31 Year
  Sex: Female

DRUGS (1)
  1. OBAGI REGENICA FACIAL REJUVENATION COMPLEX [Suspect]
     Indication: WOUND TREATMENT
     Dosage: TOPICAL
     Dates: start: 20131224, end: 20131224

REACTIONS (2)
  - Thrombosis [None]
  - Drug administration error [None]
